FAERS Safety Report 9830731 (Version 2)
Quarter: 2014Q1

REPORT INFORMATION
  Report Type: Spontaneous
  Country: UA (occurrence: UA)
  Receive Date: 20140120
  Receipt Date: 20140124
  Transmission Date: 20141002
  Serious: Yes (Hospitalization)
  Sender: FDA-Public Use
  Company Number: UA-009507513-1401UKR007460

PATIENT
  Age: 59 Year
  Sex: Female

DRUGS (3)
  1. SINGULAIR [Suspect]
     Indication: ASTHMA
     Dosage: UNK
     Route: 048
     Dates: start: 201101
  2. SINGULAIR [Suspect]
     Dosage: UNK
     Route: 048
  3. SERETIDE [Suspect]
     Indication: ASTHMA
     Dosage: IN THE AFTERNOON
     Dates: start: 201101

REACTIONS (3)
  - Asthma [Recovered/Resolved]
  - Insomnia [Recovered/Resolved]
  - Nightmare [Recovered/Resolved]
